FAERS Safety Report 6410555-3 (Version None)
Quarter: 2009Q4

REPORT INFORMATION
  Report Type: 
  Country: None (occurrence: None)
  Receive Date: 20091022
  Receipt Date: 20091008
  Transmission Date: 20100525
  Serious: Yes (Other)
  Sender: FDA-Public Use
  Company Number: NL-GENENTECH-292621

PATIENT
  Sex: Female
  Weight: 73 kg

DRUGS (1)
  1. XOLAIR [Suspect]
     Indication: BRONCHOPULMONARY ASPERGILLOSIS ALLERGIC
     Dosage: 375 MG, Q2W
     Dates: end: 19700205

REACTIONS (2)
  - PALPITATIONS [None]
  - SINUS TACHYCARDIA [None]
